FAERS Safety Report 25434484 (Version 1)
Quarter: 2025Q2

REPORT INFORMATION
  Report Type: Spontaneous
  Country: US (occurrence: US)
  Receive Date: 20250613
  Receipt Date: 20250613
  Transmission Date: 20250717
  Serious: No
  Sender: SANOFI AVENTIS
  Company Number: US-SA-2025SA164319

PATIENT
  Age: 72 Year
  Sex: Female

DRUGS (2)
  1. DUPIXENT [Suspect]
     Active Substance: DUPILUMAB
     Indication: Chronic obstructive pulmonary disease
     Dosage: 300 MG, QOW
     Route: 058
     Dates: start: 20250507
  2. PROCHLORPERAZINE [Concomitant]
     Active Substance: PROCHLORPERAZINE

REACTIONS (3)
  - Hypophagia [Unknown]
  - Abdominal discomfort [Unknown]
  - Weight decreased [Unknown]

NARRATIVE: CASE EVENT DATE: 20250101
